FAERS Safety Report 9869959 (Version 1)
Quarter: 2014Q1

REPORT INFORMATION
  Report Type: Spontaneous
  Country: US (occurrence: None)
  Receive Date: 20140203
  Receipt Date: 20140203
  Transmission Date: 20141002
  Serious: Yes (Other)
  Sender: FDA-Public Use
  Company Number: AUR-APL-2014-01008

PATIENT
  Age: 70 Year
  Sex: Male

DRUGS (3)
  1. RIBAVIRIN [Suspect]
     Indication: HEPATITIS C
  2. INTERFERON ALFA-2A [Suspect]
     Indication: HEPATITIS C
  3. BOCEPREVIR [Suspect]
     Indication: HEPATITIS C

REACTIONS (1)
  - Treatment failure [None]
